FAERS Safety Report 21997112 (Version 1)
Quarter: 2023Q1

REPORT INFORMATION
  Report Type: Spontaneous
  Country: US (occurrence: None)
  Receive Date: 20230215
  Receipt Date: 20230215
  Transmission Date: 20230418
  Serious: Yes (Hospitalization)
  Sender: FDA-Public Use
  Company Number: US-ROCHE-3286670

PATIENT
  Age: 70 Year
  Sex: Male
  Weight: 95.340 kg

DRUGS (1)
  1. OCREVUS [Suspect]
     Active Substance: OCRELIZUMAB
     Indication: Relapsing-remitting multiple sclerosis
     Dosage: UNKNOWN.  LAST DOSE OF OCRELIZUMAB IN /SEP/2022
     Route: 042

REACTIONS (1)
  - COVID-19 pneumonia [Not Recovered/Not Resolved]
